FAERS Safety Report 25779343 (Version 1)
Quarter: 2025Q3

REPORT INFORMATION
  Report Type: Report from Study
  Country: US (occurrence: US)
  Receive Date: 20250909
  Receipt Date: 20250909
  Transmission Date: 20251021
  Serious: Yes (Other)
  Sender: ABBVIE
  Company Number: US-ABBVIE-6331409

PATIENT
  Age: 77 Year
  Sex: Female

DRUGS (1)
  1. SKYRIZI [Suspect]
     Active Substance: RISANKIZUMAB-RZAA
     Indication: Psoriatic arthropathy
     Route: 058
     Dates: start: 20230115

REACTIONS (5)
  - Limb operation [Recovering/Resolving]
  - Pain in extremity [Not Recovered/Not Resolved]
  - Psoriasis [Unknown]
  - Drug ineffective [Unknown]
  - Swelling [Recovered/Resolved]

NARRATIVE: CASE EVENT DATE: 20250813
